FAERS Safety Report 9565487 (Version 7)
Quarter: 2014Q4

REPORT INFORMATION
  Report Type: Report from Study
  Country: US (occurrence: US)
  Receive Date: 20130930
  Receipt Date: 20141118
  Transmission Date: 20150529
  Serious: Yes (Hospitalization, Other)
  Sender: FDA-Public Use
  Company Number: US-ACTELION-A-NJ2013-88838

PATIENT
  Age: 46 Year
  Sex: Female

DRUGS (2)
  1. TYVASO [Concomitant]
     Active Substance: TREPROSTINIL
  2. TRACLEER [Suspect]
     Active Substance: BOSENTAN\BOSENTAN MONOHYDRATE
     Indication: PULMONARY ARTERIAL HYPERTENSION
     Dosage: UNK
     Route: 048

REACTIONS (18)
  - Syncope [Unknown]
  - Dizziness [Unknown]
  - Heart rate irregular [Unknown]
  - Echocardiogram abnormal [Unknown]
  - Pneumonia [Unknown]
  - Seizure [Unknown]
  - Cough [Unknown]
  - Chest discomfort [Unknown]
  - Oedema peripheral [Unknown]
  - Weight increased [Unknown]
  - Long QT syndrome [Unknown]
  - Dyspnoea [Unknown]
  - Fatigue [Unknown]
  - Nasopharyngitis [Unknown]
  - Drug dose omission [Unknown]
  - Oedema [Unknown]
  - Renal impairment [Unknown]
  - Nocturnal dyspnoea [Unknown]
